FAERS Safety Report 14295466 (Version 4)
Quarter: 2018Q1

REPORT INFORMATION
  Report Type: Spontaneous
  Country: FR (occurrence: FR)
  Receive Date: 20171218
  Receipt Date: 20180301
  Transmission Date: 20180509
  Serious: Yes (Death, Life-Threatening, Hospitalization, Other)
  Sender: FDA-Public Use
  Company Number: FR-AUROBINDO-AUR-APL-2017-44990

PATIENT
  Age: 71 Year
  Sex: Female

DRUGS (2)
  1. PREDNISONE. [Suspect]
     Active Substance: PREDNISONE
     Indication: RHEUMATOID ARTHRITIS
     Dosage: 6 MG, DAILY
     Route: 065
  2. METHOTREXATE. [Suspect]
     Active Substance: METHOTREXATE
     Indication: RHEUMATOID ARTHRITIS
     Dosage: 12.5 MG PER WEEK
     Route: 065

REACTIONS (14)
  - Isosporiasis [Fatal]
  - Dehydration [Fatal]
  - General physical health deterioration [Unknown]
  - Chronic kidney disease [Fatal]
  - Diarrhoea [Fatal]
  - Cardiogenic shock [Fatal]
  - Hypotension [Fatal]
  - Acute kidney injury [Fatal]
  - Tachycardia [Unknown]
  - Pyrexia [Fatal]
  - Anaemia macrocytic [Unknown]
  - Weight decreased [Fatal]
  - Abdominal pain [Fatal]
  - Mucosal dryness [Fatal]
